FAERS Safety Report 7217517-7 (Version None)
Quarter: 2010Q4

REPORT INFORMATION
  Report Type: 
  Country: None (occurrence: None)
  Receive Date: 20101126
  Receipt Date: 20101012
  Transmission Date: 20110411
  Serious: No
  Sender: FDA-Public Use
  Company Number: 316384

PATIENT
  Age: 60 Year
  Sex: Male

DRUGS (3)
  1. VICTOZA [Suspect]
     Indication: TYPE 2 DIABETES MELLITUS
     Dosage: (0.6 MG, QD, SUBUCTANEOUS) (1.2 MG, QD, SUBCUTANEOUS) (1.8 MG, QD, SUBCUTANEOUS) (1.2 MG, QD, SUBCUT
     Route: 058
     Dates: end: 20100923
  2. VICTOZA [Suspect]
     Indication: TYPE 2 DIABETES MELLITUS
     Dosage: (0.6 MG, QD, SUBUCTANEOUS) (1.2 MG, QD, SUBCUTANEOUS) (1.8 MG, QD, SUBCUTANEOUS) (1.2 MG, QD, SUBCUT
     Route: 058
     Dates: start: 20100903
  3. VICTOZA [Suspect]
     Indication: TYPE 2 DIABETES MELLITUS
     Dosage: (0.6 MG, QD, SUBUCTANEOUS) (1.2 MG, QD, SUBCUTANEOUS) (1.8 MG, QD, SUBCUTANEOUS) (1.2 MG, QD, SUBCUT
     Route: 058
     Dates: start: 20101002

REACTIONS (6)
  - BACK PAIN [None]
  - FEELING ABNORMAL [None]
  - HEADACHE [None]
  - HUNGER [None]
  - NAUSEA [None]
  - WEIGHT INCREASED [None]
